FAERS Safety Report 25064313 (Version 2)
Quarter: 2025Q3

REPORT INFORMATION
  Report Type: Spontaneous
  Country: CN (occurrence: CN)
  Receive Date: 20250311
  Receipt Date: 20250809
  Transmission Date: 20251021
  Serious: Yes (Hospitalization, Other)
  Sender: ALEXION PHARMACEUTICALS
  Company Number: CN-ASTRAZENECA-202503CHN002011CN

PATIENT
  Age: 46 Year
  Sex: Female
  Weight: 52 kg

DRUGS (5)
  1. FASLODEX [Suspect]
     Active Substance: FULVESTRANT
     Indication: Targeted cancer therapy
     Dosage: 500 MILLIGRAM, QD
     Dates: start: 20250207, end: 20250207
  2. FASLODEX [Suspect]
     Active Substance: FULVESTRANT
  3. PERTUZUMAB [Suspect]
     Active Substance: PERTUZUMAB
     Indication: Targeted cancer therapy
     Dosage: 420 MILLIGRAM, QD
     Dates: start: 20250207, end: 20250207
  4. TRASTUZUMAB [Suspect]
     Active Substance: TRASTUZUMAB
     Indication: Targeted cancer therapy
     Dosage: 300 MILLIGRAM, QD
     Dates: start: 20250207, end: 20250207
  5. DALPICICLIB ISETHIONATE [Suspect]
     Active Substance: DALPICICLIB ISETHIONATE
     Indication: Targeted cancer therapy
     Dosage: 125 MILLIGRAM, QD
     Dates: start: 20250207, end: 20250207

REACTIONS (1)
  - Myelosuppression [Recovering/Resolving]

NARRATIVE: CASE EVENT DATE: 20250301
